FAERS Safety Report 4347587-5 (Version None)
Quarter: 2004Q1

REPORT INFORMATION
  Report Type: 
  Country: None (occurrence: None)
  Receive Date: 20040325
  Receipt Date: 20031224
  Transmission Date: 20041129
  Serious: No
  Sender: FDA-Public Use
  Company Number: US_040199932

PATIENT
  Sex: Female

DRUGS (1)
  1. FORTEO [Suspect]
     Dates: start: 20031222

REACTIONS (4)
  - AGITATION [None]
  - ANXIETY [None]
  - HYPERHIDROSIS [None]
  - NERVOUSNESS [None]
